FAERS Safety Report 5230534-1 (Version None)
Quarter: 2007Q1

REPORT INFORMATION
  Report Type: 
  Country: None (occurrence: None)
  Receive Date: 20070206
  Receipt Date: 20070202
  Transmission Date: 20070707
  Serious: Yes (Other)
  Sender: FDA-Public Use
  Company Number: US-GLAXOSMITHKLINE-A0638202A

PATIENT
  Sex: Female

DRUGS (3)
  1. ADVAIR DISKUS 100/50 [Suspect]
  2. ALBUTEROL [Suspect]
     Route: 055
  3. ANESTHESIA [Concomitant]
     Indication: SURGERY

REACTIONS (2)
  - ADVERSE EVENT [None]
  - PULMONARY CONGESTION [None]
